FAERS Safety Report 5936590-7 (Version None)
Quarter: 2008Q4

REPORT INFORMATION
  Report Type: 
  Country: None (occurrence: None)
  Receive Date: 20081020
  Receipt Date: 20080728
  Transmission Date: 20090506
  Serious: Yes (Other)
  Sender: FDA-Public Use
  Company Number: US-WYE-H05286608

PATIENT
  Sex: Female

DRUGS (3)
  1. ADVIL PM [Suspect]
     Indication: ANALGESIA
     Dosage: 1 CAPLET X 1, ORAL
     Route: 048
     Dates: start: 20080723, end: 20080723
  2. ADVIL PM [Suspect]
     Indication: INSOMNIA
     Dosage: 1 CAPLET X 1, ORAL
     Route: 048
     Dates: start: 20080723, end: 20080723
  3. SYNTHROID [Concomitant]

REACTIONS (2)
  - FEELING JITTERY [None]
  - TREMOR [None]
